FAERS Safety Report 10984415 (Version 1)
Quarter: 2015Q2

REPORT INFORMATION
  Report Type: Report from Study
  Country: AR (occurrence: AR)
  Receive Date: 20150403
  Receipt Date: 20150403
  Transmission Date: 20150821
  Serious: Yes (Disabling, Other)
  Sender: FDA-Public Use
  Company Number: AR-ABBVIE-15P-007-1368317-00

PATIENT
  Age: 77 Year
  Sex: Male

DRUGS (1)
  1. ZEMPLAR [Suspect]
     Active Substance: PARICALCITOL
     Indication: HYPERPARATHYROIDISM SECONDARY
     Route: 048
     Dates: start: 20140601

REACTIONS (1)
  - Gangrene [Not Recovered/Not Resolved]

NARRATIVE: CASE EVENT DATE: 20150202
